FAERS Safety Report 6218308-6 (Version None)
Quarter: 2009Q2

REPORT INFORMATION
  Report Type: 
  Country: None (occurrence: None)
  Receive Date: 20090608
  Receipt Date: 20090601
  Transmission Date: 20091009
  Serious: Yes (Life-Threatening)
  Sender: FDA-Public Use
  Company Number: JP-JNJFOC-20090503361

PATIENT
  Sex: Male

DRUGS (4)
  1. FINIBAX [Suspect]
     Indication: CYSTITIS
     Route: 041
  2. PN TWIN [Concomitant]
     Indication: PARENTERAL NUTRITION
     Route: 042
  3. OTSUKA MV [Concomitant]
     Indication: PARENTERAL NUTRITION
     Route: 041
  4. POTACOL-R [Concomitant]
     Indication: PARENTERAL NUTRITION
     Route: 041

REACTIONS (1)
  - HEPATIC FUNCTION ABNORMAL [None]
